FAERS Safety Report 18755442 (Version 1)
Quarter: 2021Q1

REPORT INFORMATION
  Report Type: Other
  Country: US (occurrence: US)
  Receive Date: 20210119
  Receipt Date: 20210119
  Transmission Date: 20210419
  Serious: No
  Sender: FDA-Public Use
  Company Number: US-ROCHE-2751155

PATIENT
  Age: 44 Year
  Sex: Female
  Weight: 67.65 kg

DRUGS (3)
  1. TOPROL XL [Concomitant]
     Active Substance: METOPROLOL SUCCINATE
     Route: 048
  2. OCREVUS [Suspect]
     Active Substance: OCRELIZUMAB
     Indication: RELAPSING MULTIPLE SCLEROSIS
     Route: 042
     Dates: start: 20191122
  3. OCREVUS [Suspect]
     Active Substance: OCRELIZUMAB
     Indication: RELAPSING-REMITTING MULTIPLE SCLEROSIS
     Dosage: PRESCRIBED: INITIAL DOSE 300 MG DAY1 AND DAY 15, THEN SUBSEQUENT DOSE 600 MG EVERY 6 MONTHS
     Route: 042
     Dates: start: 201910

REACTIONS (5)
  - Rhinorrhoea [Not Recovered/Not Resolved]
  - Nausea [Recovered/Resolved]
  - COVID-19 [Not Recovered/Not Resolved]
  - Abdominal pain upper [Recovered/Resolved]
  - Flatulence [Recovered/Resolved]

NARRATIVE: CASE EVENT DATE: 20201225
